FAERS Safety Report 6062798-9 (Version None)
Quarter: 2009Q1

REPORT INFORMATION
  Report Type: 
  Country: None (occurrence: None)
  Receive Date: 20090203
  Receipt Date: 20090123
  Transmission Date: 20090719
  Serious: Yes (Other)
  Sender: FDA-Public Use
  Company Number: US-AVENTIS-200910461GDDC

PATIENT
  Sex: Female
  Weight: 90.72 kg

DRUGS (7)
  1. TAXOTERE [Suspect]
     Route: 042
     Dates: start: 20020110, end: 20020314
  2. ADRIAMYCIN PFS [Suspect]
     Dosage: DOSE: UNK (COMPLETED 4 CYCLES)
  3. CYTOXAN [Suspect]
     Dosage: DOSE: UNK (COMPLETED 4 CYCLES)
  4. INDERAL                            /00030001/ [Concomitant]
     Dosage: DOSE: UNK
  5. DIOVANE [Concomitant]
     Dosage: DOSE: UNK
  6. POTASSIUM CHLORIDE [Concomitant]
     Dosage: DOSE: UNK
  7. LORAZEPAM [Concomitant]
     Dosage: DOSE: UNK

REACTIONS (2)
  - BLEPHAROSPASM [None]
  - DRY EYE [None]
